FAERS Safety Report 12318172 (Version 3)
Quarter: 2016Q2

REPORT INFORMATION
  Report Type: Report from Study
  Country: BR (occurrence: BR)
  Receive Date: 20160429
  Receipt Date: 20160621
  Transmission Date: 20160815
  Serious: Yes (Hospitalization)
  Sender: FDA-Public Use
  Company Number: PHHY2016BR057494

PATIENT
  Sex: Male
  Weight: 64 kg

DRUGS (1)
  1. TASIGNA [Suspect]
     Active Substance: NILOTINIB
     Indication: CHRONIC MYELOID LEUKAEMIA
     Dosage: 400 MG, BID (400 MG IN THE MORNING AND 400 MG AT NIGHT)
     Route: 048
     Dates: start: 20160404

REACTIONS (4)
  - Abdominal pain [Recovering/Resolving]
  - Pain in extremity [Recovering/Resolving]
  - Urinary retention [Unknown]
  - Bladder dilatation [Unknown]
